FAERS Safety Report 20020779 (Version 1)
Quarter: 2021Q4

REPORT INFORMATION
  Report Type: Report from Study
  Country: BG (occurrence: BG)
  Receive Date: 20211101
  Receipt Date: 20211101
  Transmission Date: 20220303
  Serious: Yes (Other)
  Sender: FDA-Public Use
  Company Number: BG-BAYER-2021A217079

PATIENT
  Age: 57 Year
  Sex: Female

DRUGS (1)
  1. STIVARGA [Suspect]
     Active Substance: REGORAFENIB
     Indication: Colorectal cancer
     Dosage: 160 MG, UNK
     Route: 048
     Dates: start: 20210727, end: 20210916

REACTIONS (1)
  - Female genital tract fistula [None]
